FAERS Safety Report 4455172-X (Version None)
Quarter: 2004Q3

REPORT INFORMATION
  Report Type: 
  Country: None (occurrence: None)
  Receive Date: 20040917
  Receipt Date: 20040903
  Transmission Date: 20050211
  Serious: Yes (Other)
  Sender: FDA-Public Use
  Company Number: CH-2004-031252

PATIENT
  Age: 34 Year
  Sex: Female
  Weight: 82 kg

DRUGS (1)
  1. MIRENA [Suspect]
     Indication: CONTRACEPTION
     Dosage: 0,02MG(DAILY, INTRA-UTERINE
     Route: 015
     Dates: start: 19980915

REACTIONS (3)
  - HYPERPLASIA [None]
  - SMEAR CERVIX ABNORMAL [None]
  - UTERINE CERVICAL SQUAMOUS METAPLASIA [None]
